FAERS Safety Report 5624263-X (Version None)
Quarter: 2008Q1

REPORT INFORMATION
  Report Type: 
  Country: None (occurrence: None)
  Receive Date: 20080208
  Receipt Date: 20080208
  Transmission Date: 20080703
  Serious: Yes (Other)
  Sender: FDA-Public Use
  Company Number: None

PATIENT
  Age: 48 Year
  Sex: Male
  Weight: 128 kg

DRUGS (8)
  1. BORTEZOMIB [Suspect]
     Indication: MANTLE CELL LYMPHOMA
     Dosage: B=3.1 MG; B=D1+4; IV
     Route: 042
     Dates: start: 20071226
  2. BORTEZOMIB [Suspect]
     Indication: MANTLE CELL LYMPHOMA
     Dosage: B=3.1 MG; B=D1+4; IV
     Route: 042
     Dates: start: 20071229
  3. CYCLOPHOSPHAMIDE [Suspect]
     Dosage: C=720 MG; C=D1,2,3; IV
     Route: 042
     Dates: start: 20071226, end: 20071228
  4. RITUXAN [Suspect]
     Route: 042
     Dates: start: 20071226
  5. DOXORUBICIN HCL [Suspect]
     Dosage: DOX=60MG;DOX=D1-2;CIV
     Route: 042
     Dates: start: 20071226
  6. DOXORUBICIN HCL [Suspect]
     Dosage: DOX=60MG;DOX=D1-2;CIV
     Route: 042
     Dates: start: 20071227
  7. DEXAMETHASONE [Suspect]
     Dosage: DEX=1-4
     Route: 048
     Dates: start: 20071226, end: 20071229
  8. VINCRISTINE [Suspect]
     Dosage: VCR=1MG D3; IV
     Route: 042
     Dates: start: 20071228

REACTIONS (3)
  - CATHETER RELATED COMPLICATION [None]
  - DEEP VEIN THROMBOSIS [None]
  - EMBOLISM [None]
